FAERS Safety Report 8906318 (Version 2)
Quarter: 2013Q1

REPORT INFORMATION
  Report Type: Spontaneous
  Country: US (occurrence: None)
  Receive Date: 20121107
  Receipt Date: 20121120
  Transmission Date: 20140127
  Serious: Yes (Hospitalization, Other)
  Sender: FDA-Public Use
  Company Number: US-1194860

PATIENT
  Age: 70 Year
  Sex: Female
  Weight: 72.58 kg

DRUGS (10)
  1. TIMOLOL MALEATE [Suspect]
     Route: 047
  2. LIPITOR [Concomitant]
  3. ISOSORBIDE [Concomitant]
  4. BENAZEPRIL [Concomitant]
  5. AMLODIPINE [Concomitant]
  6. BABY ASPIRIN [Concomitant]
  7. XARELTO [Concomitant]
  8. TRAVATAN [Concomitant]
  9. FLUOXETINE [Concomitant]
  10. LEVETIRACETAM [Concomitant]

REACTIONS (3)
  - Convulsion [None]
  - Bradycardia [None]
  - Product dropper issue [None]
